FAERS Safety Report 5812037-6 (Version None)
Quarter: 2008Q3

REPORT INFORMATION
  Report Type: 
  Country: None (occurrence: None)
  Receive Date: 20080716
  Receipt Date: 20080708
  Transmission Date: 20090109
  Serious: Yes (Hospitalization)
  Sender: FDA-Public Use
  Company Number: PHHY2008SE13329

PATIENT
  Sex: Female

DRUGS (6)
  1. DIOVAN COMP [Suspect]
     Indication: HYPERTENSION
     Dosage: UNK
     Dates: start: 20070101
  2. METOPROLOL TARTRATE [Concomitant]
  3. INSULIN [Concomitant]
  4. ASPIRIN [Concomitant]
  5. PLAVIX [Concomitant]
  6. SODIUM CHLORIDE 0.9% [Concomitant]

REACTIONS (4)
  - ELECTROLYTE IMBALANCE [None]
  - FALL [None]
  - FRACTURE [None]
  - SYNCOPE [None]
